FAERS Safety Report 10073514 (Version 1)
Quarter: 2014Q2

REPORT INFORMATION
  Report Type: Spontaneous
  Country: RO (occurrence: RO)
  Receive Date: 20140411
  Receipt Date: 20140411
  Transmission Date: 20141212
  Serious: Yes (Hospitalization, Other)
  Sender: FDA-Public Use
  Company Number: RO-ABBVIE-14P-135-1222083-00

PATIENT
  Age: 34 Year
  Sex: Female
  Weight: 45 kg

DRUGS (4)
  1. HUMIRA [Suspect]
     Indication: COLITIS
     Route: 058
     Dates: start: 20140203, end: 20140402
  2. HUMIRA [Suspect]
     Indication: INTESTINAL HAEMORRHAGE
  3. SALAZOPYRIN [Suspect]
     Indication: COLITIS
  4. SALAZOPYRIN [Suspect]
     Indication: INTESTINAL HAEMORRHAGE

REACTIONS (3)
  - Anaemia [Not Recovered/Not Resolved]
  - Pallor [Not Recovered/Not Resolved]
  - Dizziness [Not Recovered/Not Resolved]
